FAERS Safety Report 13456331 (Version 2)
Quarter: 2017Q3

REPORT INFORMATION
  Report Type: Spontaneous
  Country: US (occurrence: US)
  Receive Date: 20170418
  Receipt Date: 20170712
  Transmission Date: 20171127
  Serious: Yes (Hospitalization, Other)
  Sender: FDA-Public Use
  Company Number: US-PFIZER INC-2017163257

PATIENT
  Age: 79 Year
  Sex: Female
  Weight: 64 kg

DRUGS (8)
  1. LYRICA [Suspect]
     Active Substance: PREGABALIN
     Indication: POST POLIO SYNDROME
     Dosage: 50 MG, 2X/DAY
  2. TRAMADOL. [Concomitant]
     Active Substance: TRAMADOL
     Indication: PAIN
     Dosage: 50 MG, 4X/DAY, EVERY 6 HOURS
     Dates: start: 201604
  3. OXYCODONE [Concomitant]
     Active Substance: OXYCODONE
     Dosage: UNK UNK, EVERY 4 HRS
     Dates: end: 201703
  4. LYRICA [Suspect]
     Active Substance: PREGABALIN
     Dosage: 75 MG, 2X/DAY
     Route: 048
     Dates: start: 201605
  5. ADVIL [Concomitant]
     Active Substance: IBUPROFEN
     Indication: PAIN
     Dosage: ^LIQUIGELS^ MAYBE 150MG
     Dates: end: 2017
  6. ADVIL [Concomitant]
     Active Substance: IBUPROFEN
     Dosage: ^LIQUIGELS^ MAYBE 150MG
     Dates: start: 20170403
  7. LYRICA [Suspect]
     Active Substance: PREGABALIN
     Dosage: 75 MG, 2X/DAY
     Route: 048
     Dates: start: 201706
  8. TRAMADOL. [Concomitant]
     Active Substance: TRAMADOL
     Indication: POST POLIO SYNDROME
     Dosage: 50 MG, EVERY 4 HRS
     Dates: start: 20170302, end: 201703

REACTIONS (4)
  - Pneumonia [Recovered/Resolved]
  - Non-small cell lung cancer stage III [Recovering/Resolving]
  - Product use in unapproved indication [Unknown]
  - Weight increased [Not Recovered/Not Resolved]

NARRATIVE: CASE EVENT DATE: 201609
